FAERS Safety Report 23516547 (Version 1)
Quarter: 2024Q1

REPORT INFORMATION
  Report Type: 
  Country: None (occurrence: None)
  Receive Date: 20240213
  Receipt Date: 20240213
  Transmission Date: 20240410
  Serious: No
  Sender: FDA-Public Use
  Company Number: CN-ROCHE-3506051

PATIENT
  Weight: 57 kg

DRUGS (2)
  1. CARBOPLATIN [Suspect]
     Active Substance: CARBOPLATIN
     Dates: start: 20240115, end: 20240115
  2. AVASTIN [Suspect]
     Active Substance: BEVACIZUMAB
     Dates: start: 20240115, end: 20240115

REACTIONS (6)
  - Myelosuppression [None]
  - Asthenia [None]
  - Decreased appetite [None]
  - Nausea [None]
  - Pyrexia [None]
  - Oedema [None]

NARRATIVE: CASE EVENT DATE: 20240118
